FAERS Safety Report 10475333 (Version 1)
Quarter: 2014Q3

REPORT INFORMATION
  Report Type: Spontaneous
  Country: US (occurrence: None)
  Receive Date: 20140924
  Receipt Date: 20140924
  Transmission Date: 20150326
  Serious: Yes (Hospitalization)
  Sender: FDA-Public Use
  Company Number: None

PATIENT
  Age: 68 Year
  Sex: Female
  Weight: 68.5 kg

DRUGS (10)
  1. MVI [Concomitant]
     Active Substance: VITAMINS
  2. COUMADIN [Suspect]
     Active Substance: WARFARIN SODIUM
     Indication: DEEP VEIN THROMBOSIS
     Route: 048
  3. ALBUTEROL. [Concomitant]
     Active Substance: ALBUTEROL
  4. LACTOBACILLIUS [Concomitant]
  5. MORPHINE [Concomitant]
     Active Substance: MORPHINE
  6. LANSOPRAZOLE. [Concomitant]
     Active Substance: LANSOPRAZOLE
  7. SYMBICORT [Concomitant]
     Active Substance: BUDESONIDE\FORMOTEROL FUMARATE DIHYDRATE
  8. ACIDOPHILUS [Concomitant]
     Active Substance: LACTOBACILLUS ACIDOPHILUS
  9. TIOTROPIUM [Concomitant]
     Active Substance: TIOTROPIUM
  10. BUDESONIDE. [Concomitant]
     Active Substance: BUDESONIDE

REACTIONS (7)
  - Sepsis [None]
  - Haemoptysis [None]
  - Urinary tract infection [None]
  - Streptococcus test positive [None]
  - International normalised ratio increased [None]
  - Haemoglobin decreased [None]
  - Escherichia urinary tract infection [None]

NARRATIVE: CASE EVENT DATE: 20140323
